FAERS Safety Report 9339024 (Version 1)
Quarter: 2013Q2

REPORT INFORMATION
  Report Type: Spontaneous
  Country: GB (occurrence: GB)
  Receive Date: 20130610
  Receipt Date: 20130610
  Transmission Date: 20140414
  Serious: Yes (Hospitalization)
  Sender: FDA-Public Use
  Company Number: GB-BAYER-2013-068619

PATIENT
  Age: 94 Year
  Sex: Female

DRUGS (1)
  1. CIPROFLOXACIN [Suspect]
     Indication: OTITIS EXTERNA
     Dosage: UNK
     Route: 048

REACTIONS (6)
  - Drug ineffective [None]
  - Abscess of external auditory meatus [Recovering/Resolving]
  - Fall [None]
  - Cranial nerve palsies multiple [Recovered/Resolved]
  - Vocal cord paralysis [None]
  - Dysphagia [None]
